FAERS Safety Report 7979939-6 (Version None)
Quarter: 2011Q4

REPORT INFORMATION
  Report Type: 
  Country: None (occurrence: None)
  Receive Date: 20111214
  Receipt Date: 20111129
  Transmission Date: 20120403
  Serious: Yes (Other)
  Sender: FDA-Public Use
  Company Number: JP-WATSON-2011-21370

PATIENT
  Age: 63 Year
  Sex: Male

DRUGS (3)
  1. TACROLIMUS [Suspect]
     Indication: TRANSPLANT
  2. GEMCITABINE [Suspect]
     Indication: METASTASES TO LUNG
     Route: 065
  3. OXALIPLATIN [Suspect]
     Indication: METASTASES TO LUNG
     Route: 065

REACTIONS (3)
  - DRUG LEVEL INCREASED [None]
  - DRUG INEFFECTIVE [None]
  - DRUG INTERACTION [None]
